FAERS Safety Report 5402079-7 (Version None)
Quarter: 2007Q3

REPORT INFORMATION
  Report Type: 
  Country: None (occurrence: None)
  Receive Date: 20070726
  Receipt Date: 20070705
  Transmission Date: 20080115
  Serious: Yes (Hospitalization)
  Sender: FDA-Public Use
  Company Number: US200704001777

PATIENT
  Age: 65 Year
  Sex: Female

DRUGS (3)
  1. PROZAC [Suspect]
     Indication: DEPRESSION
     Dosage: 10 MG, 2/D AS NEEDED; 10 MG DAILY (1/D) AS NEEDED
  2. FORTEO [Suspect]
     Indication: OSTEOPOROSIS
     Dosage: 20 UG, DAILY (1/D)
     Dates: start: 20070401, end: 20070704
  3. FORTEP PEN (TERIPARATIDE) PEN, DISPOABLE [Concomitant]

REACTIONS (18)
  - ARTHRALGIA [None]
  - ARTHRITIS [None]
  - ARTHROPATHY [None]
  - BONE DISORDER [None]
  - BONE PAIN [None]
  - DEPRESSION [None]
  - GLAUCOMA [None]
  - HEADACHE [None]
  - INAPPROPRIATE SCHEDULE OF DRUG ADMINISTRATION [None]
  - INSOMNIA [None]
  - IRRITABLE BOWEL SYNDROME [None]
  - MULTIPLE ALLERGIES [None]
  - OSTEOPOROSIS [None]
  - PAIN [None]
  - PAIN IN EXTREMITY [None]
  - PHARMACEUTICAL PRODUCT COMPLAINT [None]
  - SPINAL FRACTURE [None]
  - UPPER LIMB FRACTURE [None]
